FAERS Safety Report 7301186-1 (Version None)
Quarter: 2011Q1

REPORT INFORMATION
  Report Type: 
  Country: None (occurrence: None)
  Receive Date: 20110112
  Receipt Date: 20090515
  Transmission Date: 20110831
  Serious: Yes (Hospitalization)
  Sender: FDA-Public Use
  Company Number: THYM-1001053

PATIENT
  Sex: Female

DRUGS (1)
  1. THYMOGLOBULIN [Suspect]
     Indication: PROPHYLAXIS AGAINST TRANSPLANT REJECTION
     Dosage: INTRAVENOUS
     Route: 042

REACTIONS (1)
  - ANAPHYLACTIC REACTION [None]
